FAERS Safety Report 14556468 (Version 2)
Quarter: 2018Q1

REPORT INFORMATION
  Report Type: Spontaneous
  Country: US (occurrence: US)
  Receive Date: 20180221
  Receipt Date: 20180311
  Transmission Date: 20180509
  Serious: Yes (Hospitalization)
  Sender: FDA-Public Use
  Company Number: US-BIOGEN-2018BI00527901

PATIENT
  Age: 38 Year
  Sex: Female

DRUGS (3)
  1. TECFIDERA [Suspect]
     Active Substance: DIMETHYL FUMARATE
     Indication: MULTIPLE SCLEROSIS
     Route: 048
     Dates: start: 20130725, end: 20180214
  2. TECFIDERA [Suspect]
     Active Substance: DIMETHYL FUMARATE
     Route: 048
     Dates: end: 20171006
  3. TECFIDERA [Suspect]
     Active Substance: DIMETHYL FUMARATE
     Route: 048

REACTIONS (5)
  - Cardiac arrest [Recovered/Resolved]
  - Pancreatitis [Recovered/Resolved]
  - Ventricular tachycardia [Recovered/Resolved]
  - Vomiting [Recovered/Resolved]
  - Blood electrolytes decreased [Unknown]

NARRATIVE: CASE EVENT DATE: 2017
